FAERS Safety Report 9569466 (Version 1)
Quarter: 2013Q3

REPORT INFORMATION
  Report Type: Spontaneous
  Country: US (occurrence: US)
  Receive Date: 20130930
  Receipt Date: 20130930
  Transmission Date: 20140515
  Serious: No
  Sender: FDA-Public Use
  Company Number: US-AMGEN-USASP2013066686

PATIENT
  Age: 59 Year
  Sex: Female

DRUGS (1)
  1. ENBREL [Suspect]
     Indication: ANKYLOSING SPONDYLITIS
     Dosage: 50 MG, QWK
     Route: 065
     Dates: start: 20130626, end: 201308

REACTIONS (4)
  - Erythema [Not Recovered/Not Resolved]
  - Nodule [Not Recovered/Not Resolved]
  - Tenderness [Not Recovered/Not Resolved]
  - Contusion [Not Recovered/Not Resolved]
